FAERS Safety Report 12917807 (Version 2)
Quarter: 2016Q4

REPORT INFORMATION
  Report Type: Spontaneous
  Country: US (occurrence: US)
  Receive Date: 20161107
  Receipt Date: 20161111
  Transmission Date: 20170207
  Serious: No
  Sender: FDA-Public Use
  Company Number: US-PFIZER INC-2016514395

PATIENT
  Age: 71 Year
  Sex: Female
  Weight: 82.1 kg

DRUGS (9)
  1. LORAZEPAM. [Concomitant]
     Active Substance: LORAZEPAM
     Indication: ANXIETY
     Dosage: 1 MG TABLET AS NEEDED
     Dates: start: 201602
  2. LYRICA [Suspect]
     Active Substance: PREGABALIN
     Indication: NEURALGIA
     Dosage: TAKE ONE 50 MG CAPSULE TWICE A DAY FOR THREE DAYS
     Dates: start: 20161020, end: 20161022
  3. LYRICA [Suspect]
     Active Substance: PREGABALIN
     Indication: TINNITUS
     Dosage: 50 MG, 3X/DAY
     Dates: start: 20161023, end: 20161024
  4. LYRICA [Suspect]
     Active Substance: PREGABALIN
     Indication: EAR PAIN
     Dosage: TAKE ONE 50 MG CAPSULE DAILY FOR THREE DAYS
     Dates: start: 20161017, end: 20161019
  5. LYRICA [Suspect]
     Active Substance: PREGABALIN
     Dosage: 50 MG, DAILY (TOOK ONE 50 MG CAPSULE)
     Dates: start: 20161030, end: 20161031
  6. CELEXA [Concomitant]
     Active Substance: CITALOPRAM HYDROBROMIDE
     Indication: DEPRESSION
     Dosage: 20 MG TABLET DAILY
     Dates: start: 201602
  7. LYRICA [Suspect]
     Active Substance: PREGABALIN
     Dosage: TOOK TWO 50 MG CAPSULES THAT DAY
     Dates: start: 20161025, end: 20161025
  8. LYRICA [Suspect]
     Active Substance: PREGABALIN
     Dosage: 50 MG, DAILY (TOOK 50 MG LYRICA AT 10;45AM)
     Dates: start: 20161103
  9. LYRICA [Suspect]
     Active Substance: PREGABALIN
     Dosage: 50 MG, DAILY (TOOK ONE 50 MG CAPSULES THAT DAY)
     Dates: start: 20161026, end: 20161026

REACTIONS (4)
  - Product use issue [Unknown]
  - Intentional product use issue [Unknown]
  - Tinnitus [Unknown]
  - Condition aggravated [Unknown]

NARRATIVE: CASE EVENT DATE: 20161017
